FAERS Safety Report 10560751 (Version 1)
Quarter: 2014Q4

REPORT INFORMATION
  Report Type: Report from Study
  Country: US (occurrence: US)
  Receive Date: 20141103
  Receipt Date: 20141103
  Transmission Date: 20150529
  Serious: Yes (Hospitalization)
  Sender: FDA-Public Use
  Company Number: US-BRISTOL-MYERS SQUIBB COMPANY-21538699

PATIENT
  Age: 63 Year
  Sex: Male
  Weight: 85.9 kg

DRUGS (3)
  1. INTERFERON NOS [Suspect]
     Active Substance: INTERFERON
     Dosage: 1 DF=40 MU;20 MU/M2 NOS
     Route: 042
  2. IPILIMUMAB [Suspect]
     Active Substance: IPILIMUMAB
     Indication: MALIGNANT MELANOMA
     Dosage: 258MG
     Route: 042
     Dates: start: 20140407, end: 20140407
  3. CIPRO [Concomitant]
     Active Substance: CIPROFLOXACIN HYDROCHLORIDE

REACTIONS (2)
  - Infection [Recovering/Resolving]
  - Loss of consciousness [Recovering/Resolving]

NARRATIVE: CASE EVENT DATE: 20140407
